FAERS Safety Report 7979002-4 (Version None)
Quarter: 2011Q4

REPORT INFORMATION
  Report Type: 
  Country: None (occurrence: None)
  Receive Date: 20111214
  Receipt Date: 20111213
  Transmission Date: 20120403
  Serious: Yes (Hospitalization)
  Sender: FDA-Public Use
  Company Number: IT-BAYER-2011-119671

PATIENT
  Age: 68 Year
  Sex: Female

DRUGS (6)
  1. ASPIRIN [Suspect]
     Indication: PLATELET AGGREGATION INHIBITION
     Dosage: 100 MG, QD
     Route: 048
     Dates: start: 19991210, end: 20111212
  2. VOLTAREN [Suspect]
     Indication: BACK PAIN
     Dosage: DAILY DOSE 100 MG
     Route: 048
     Dates: start: 20111209, end: 20111212
  3. XYZAL [Concomitant]
     Dosage: DAILY DOSE 5 MG
     Route: 048
     Dates: start: 20111001, end: 20111212
  4. TELMISARTAN [Concomitant]
     Dosage: DAILY DOSE 80 MG
     Route: 048
     Dates: start: 20111201, end: 20111212
  5. OLMESARTAN MEDOXOMIL [Concomitant]
     Dosage: DAILY DOSE 45 MG
     Route: 048
     Dates: start: 20041201, end: 20111212
  6. METFORMIN HCL [Concomitant]
     Dosage: DAILY DOSE 402.5 MG
     Route: 048
     Dates: start: 20051201, end: 20111212

REACTIONS (2)
  - HAEMATEMESIS [None]
  - GASTRITIS EROSIVE [None]
